FAERS Safety Report 4595666-X (Version None)
Quarter: 2005Q1

REPORT INFORMATION
  Report Type: 
  Country: None (occurrence: None)
  Receive Date: 20050224
  Receipt Date: 20041028
  Transmission Date: 20050727
  Serious: Yes (Life-Threatening, Hospitalization)
  Sender: FDA-Public Use
  Company Number: 9146

PATIENT
  Age: 74 Year
  Sex: Female

DRUGS (6)
  1. CARBOPLATIN [Suspect]
     Indication: ENDOMETRIAL CANCER
     Dosage: 500 MG ONCE, IV
     Route: 042
     Dates: start: 20041026, end: 20041026
  2. PACLITAXEL [Concomitant]
  3. ONDASETRON [Concomitant]
  4. DEXAMETHASONE [Concomitant]
  5. PIRITON [Concomitant]
  6. CIMETIDINE [Concomitant]

REACTIONS (6)
  - ANAPHYLACTIC REACTION [None]
  - FEELING ABNORMAL [None]
  - INCONTINENCE [None]
  - INFUSION RELATED REACTION [None]
  - RESPIRATORY ARREST [None]
  - VISION BLURRED [None]
